FAERS Safety Report 7089939-9 (Version None)
Quarter: 2010Q4

REPORT INFORMATION
  Report Type: 
  Country: None (occurrence: None)
  Receive Date: 20101108
  Receipt Date: 20101026
  Transmission Date: 20110411
  Serious: Yes (Other)
  Sender: FDA-Public Use
  Company Number: SE-MYLANLABS-2010S1019608

PATIENT
  Age: 47 Year
  Sex: Female

DRUGS (2)
  1. FLUOXETINE [Suspect]
     Indication: ANXIETY
     Dates: end: 20100606
  2. FLUOXETINE [Suspect]
     Dates: end: 20100606

REACTIONS (1)
  - PNEUMONIA [None]
